FAERS Safety Report 7762962-4 (Version None)
Quarter: 2011Q3

REPORT INFORMATION
  Report Type: 
  Country: None (occurrence: None)
  Receive Date: 20110920
  Receipt Date: 20110909
  Transmission Date: 20111222
  Serious: Yes (Hospitalization)
  Sender: FDA-Public Use
  Company Number: IT-VERTEX PHARMACEUTICALS INC.-AE-2011-000632

PATIENT
  Sex: Female
  Weight: 54 kg

DRUGS (6)
  1. VX-950 [Suspect]
     Indication: HEPATITIS C
     Route: 048
     Dates: start: 20110601, end: 20110722
  2. GENTAMICIN [Concomitant]
     Indication: RASH
     Route: 061
     Dates: start: 20110711, end: 20110725
  3. ATARAX [Concomitant]
     Indication: RASH
     Route: 048
     Dates: start: 20110711
  4. HYDROCORTISONE [Concomitant]
     Indication: RASH
     Route: 061
     Dates: start: 20110711, end: 20110725
  5. COPEGUS [Suspect]
     Indication: HEPATITIS C
     Dosage: 400MG IN THE MORNING AND 600MG IN THE EVENING
     Route: 048
     Dates: start: 20110601, end: 20110722
  6. PEGASYS [Suspect]
     Indication: HEPATITIS C
     Route: 058
     Dates: start: 20110601, end: 20110720

REACTIONS (1)
  - DRUG RASH WITH EOSINOPHILIA AND SYSTEMIC SYMPTOMS [None]
